FAERS Safety Report 5557051-3 (Version None)
Quarter: 2007Q4

REPORT INFORMATION
  Report Type: 
  Country: None (occurrence: None)
  Receive Date: 20071214
  Receipt Date: 20071206
  Transmission Date: 20080405
  Serious: Yes (Other)
  Sender: FDA-Public Use
  Company Number: US-WYE-H01649407

PATIENT
  Age: 80 Year
  Sex: Female
  Weight: 45.4 kg

DRUGS (1)
  1. TYGACIL [Suspect]
     Indication: PLEURAL EFFUSION
     Route: 042

REACTIONS (1)
  - PANCYTOPENIA [None]
